FAERS Safety Report 9308184 (Version 2)
Quarter: 2013Q2

REPORT INFORMATION
  Report Type: Spontaneous
  Country: JP (occurrence: JP)
  Receive Date: 20130524
  Receipt Date: 20130614
  Transmission Date: 20140414
  Serious: Yes (Other)
  Sender: FDA-Public Use
  Company Number: JP-ASTELLAS-2013US005378

PATIENT
  Age: 59 Year
  Sex: Female

DRUGS (13)
  1. TARCEVA [Suspect]
     Indication: ADENOCARCINOMA PANCREAS
     Dosage: 100 MG, UID/QD
     Route: 048
     Dates: start: 20121217, end: 20130123
  2. TARCEVA [Suspect]
     Dosage: 100 MG, UID/QD
     Route: 048
     Dates: start: 20130207, end: 20130320
  3. TARCEVA [Suspect]
     Dosage: 100 MG, UID/QD
     Route: 048
     Dates: start: 20130404, end: 20130430
  4. GEMCITABINE [Suspect]
     Indication: ADENOCARCINOMA PANCREAS
     Dosage: UNK
     Route: 041
     Dates: start: 20121217
  5. GEMCITABINE [Suspect]
     Dosage: 1000 MG/M2, CYCLIC
     Route: 041
     Dates: start: 20130418, end: 20130418
  6. HIRUDOID                           /00723701/ [Concomitant]
     Indication: PROPHYLAXIS
     Dosage: UNK
     Route: 003
     Dates: start: 20130131, end: 20130502
  7. ANTEBATE [Concomitant]
     Indication: PROPHYLAXIS
     Dosage: UNK
     Route: 003
     Dates: start: 20130131, end: 20130502
  8. RABEPRAZOLE SODIUM [Concomitant]
     Indication: ADENOCARCINOMA PANCREAS
     Dosage: 10 MG, UID/QD
     Route: 048
     Dates: start: 20130214
  9. FERROMIA                           /00023520/ [Concomitant]
     Indication: ADENOCARCINOMA PANCREAS
     Dosage: 50 MG, BID
     Route: 048
     Dates: start: 20130307
  10. URSO                               /00465701/ [Concomitant]
     Indication: ADENOCARCINOMA PANCREAS
     Dosage: 100 MG, TID
     Route: 048
     Dates: start: 20130307
  11. RINDERON                           /00008501/ [Concomitant]
     Indication: PROPHYLAXIS
     Dosage: UNK
     Route: 003
     Dates: start: 20130307, end: 20130502
  12. ALMETA [Concomitant]
     Indication: PROPHYLAXIS
     Dosage: UNK
     Route: 003
     Dates: start: 20130307, end: 20130502
  13. MINOMYCIN [Concomitant]
     Indication: PROPHYLAXIS
     Dosage: 50 MG, BID
     Route: 048
     Dates: start: 20130404, end: 20130502

REACTIONS (1)
  - Interstitial lung disease [Recovering/Resolving]
